FAERS Safety Report 6957787-3 (Version None)
Quarter: 2010Q3

REPORT INFORMATION
  Report Type: 
  Country: None (occurrence: None)
  Receive Date: 20100830
  Receipt Date: 20100830
  Transmission Date: 20110219
  Serious: Yes (Hospitalization, Other)
  Sender: FDA-Public Use
  Company Number: None

PATIENT
  Age: 49 Year
  Sex: Female
  Weight: 68.0396 kg

DRUGS (1)
  1. LEVAQUIN [Suspect]
     Indication: CELLULITIS
     Dosage: 1 TABLET DAILY PO
     Route: 048
     Dates: start: 20100219, end: 20100225

REACTIONS (5)
  - CONTUSION [None]
  - ELECTROCARDIOGRAM ABNORMAL [None]
  - HYPOTENSION [None]
  - SYNCOPE [None]
  - TENDONITIS [None]
